FAERS Safety Report 24275100 (Version 3)
Quarter: 2024Q4

REPORT INFORMATION
  Report Type: Report from Study
  Country: CN (occurrence: CN)
  Receive Date: 20240902
  Receipt Date: 20241220
  Transmission Date: 20250115
  Serious: Yes (Other)
  Sender: NOVARTIS
  Company Number: CN-002147023-NVSC2024CN106006

PATIENT
  Age: 47 Year
  Sex: Male

DRUGS (3)
  1. LEQVIO [Suspect]
     Active Substance: INCLISIRAN SODIUM
     Indication: Hyperlipidaemia
     Dosage: 1 DOSAGE FORM (FIRST INJECTION)
     Route: 058
     Dates: start: 20240513, end: 20240818
  2. LEQVIO [Suspect]
     Active Substance: INCLISIRAN SODIUM
     Dosage: 1 DOSAGE FORM (SECOND INJECTION)
     Route: 058
     Dates: start: 20241012, end: 20241012
  3. DIOVAN [Concomitant]
     Active Substance: VALSARTAN
     Indication: Product used for unknown indication
     Dosage: UNK
     Route: 065

REACTIONS (10)
  - Liver injury [Not Recovered/Not Resolved]
  - Myalgia [Unknown]
  - Blood creatine phosphokinase increased [Recovered/Resolved]
  - Muscle disorder [Unknown]
  - Blood homocysteine increased [Unknown]
  - Blood uric acid increased [Unknown]
  - Drug ineffective [Unknown]
  - Bile acids increased [Not Recovered/Not Resolved]
  - Swelling [Unknown]
  - Low density lipoprotein increased [Unknown]

NARRATIVE: CASE EVENT DATE: 20240101
